FAERS Safety Report 23747489 (Version 1)
Quarter: 2024Q2

REPORT INFORMATION
  Report Type: Spontaneous
  Country: SI (occurrence: SI)
  Receive Date: 20240416
  Receipt Date: 20240416
  Transmission Date: 20240716
  Serious: Yes (Life-Threatening)
  Sender: FDA-Public Use
  Company Number: None

PATIENT
  Age: 43 Year
  Sex: Female
  Weight: 86 kg

DRUGS (3)
  1. AJOVY [Suspect]
     Active Substance: FREMANEZUMAB-VFRM
     Indication: Migraine
     Dosage: DRUG STRENGTH: 225MG?DOSE: 1 APPLICATION PER MONTH???AJOVY 225 MG
     Route: 058
     Dates: start: 20240306
  2. NAPROXEN SODIUM [Concomitant]
     Active Substance: NAPROXEN\NAPROXEN SODIUM
     Indication: Analgesic therapy
     Dosage: TIME INTERVAL: AS NECESSARY: IF NECCESSARY??NALGESIN FORTE 550 MG
     Route: 065
  3. ACETAMINOPHEN [Concomitant]
     Active Substance: ACETAMINOPHEN
     Indication: Analgesic therapy
     Dosage: TIME INTERVAL: AS NECESSARY: IF NECCESSARY??LEKADOL 1000 MG
     Route: 065

REACTIONS (2)
  - Aphthous ulcer [Recovering/Resolving]
  - Hypersensitivity [Recovering/Resolving]

NARRATIVE: CASE EVENT DATE: 20240307
